FAERS Safety Report 19112021 (Version 1)
Quarter: 2021Q2

REPORT INFORMATION
  Report Type: Spontaneous
  Country: US (occurrence: US)
  Receive Date: 20210409
  Receipt Date: 20210409
  Transmission Date: 20210717
  Serious: Yes (Hospitalization)
  Sender: FDA-Public Use
  Company Number: None

PATIENT
  Age: 49 Year
  Sex: Female

DRUGS (3)
  1. OXYCODONE, METOPROLOL, VALSARTAN, NORCO, TAMOXIFEN, HERCEPTIN, TUKYSA [Concomitant]
  2. ZOLEDRONIC [Concomitant]
     Active Substance: ZOLEDRONIC ACID
  3. CAPECITABINE. [Suspect]
     Active Substance: CAPECITABINE
     Indication: BREAST CANCER FEMALE
     Dosage: ?          OTHER FREQUENCY:BID DAYS 1?7,15?21;?
     Route: 048
     Dates: start: 20201013

REACTIONS (3)
  - Urinary tract infection [None]
  - Sepsis [None]
  - Therapy interrupted [None]

NARRATIVE: CASE EVENT DATE: 20210201
